FAERS Safety Report 14739659 (Version 1)
Quarter: 2018Q2

REPORT INFORMATION
  Report Type: Report from Study
  Country: None (occurrence: ES)
  Receive Date: 20180410
  Receipt Date: 20180410
  Transmission Date: 20180711
  Serious: Yes (Other)
  Sender: FDA-Public Use
  Company Number: ES-ABBVIE-18K-144-2316370-00

PATIENT
  Sex: Female
  Weight: 49 kg

DRUGS (1)
  1. DUODOPA [Suspect]
     Active Substance: CARBIDOPA\LEVODOPA
     Indication: PARKINSON^S DISEASE
     Route: 050
     Dates: start: 20130708

REACTIONS (7)
  - Respiratory failure [Recovered/Resolved]
  - Off label use [Unknown]
  - Cognitive disorder [Unknown]
  - Parkinson^s disease [Unknown]
  - General physical health deterioration [Unknown]
  - Device dislocation [Unknown]
  - Fall [Unknown]

NARRATIVE: CASE EVENT DATE: 2018
